FAERS Safety Report 12238985 (Version 1)
Quarter: 2016Q2

REPORT INFORMATION
  Report Type: Spontaneous
  Country: CZ (occurrence: CZ)
  Receive Date: 20160405
  Receipt Date: 20160405
  Transmission Date: 20160815
  Serious: Yes (Other)
  Sender: FDA-Public Use
  Company Number: CZ-ALLERGAN-1652655US

PATIENT
  Age: 27 Year
  Sex: Female

DRUGS (1)
  1. LEVOSERT [Suspect]
     Active Substance: LEVONORGESTREL
     Indication: CHEMICAL CONTRACEPTION
     Dosage: 1 DOSAGE FORM: 52 MG, THE INITIAL RELEASE RATE IS 20 MICROGRAMS/24 HOURS
     Route: 015
     Dates: start: 20151030, end: 20160209

REACTIONS (3)
  - Metrorrhagia [Unknown]
  - Device expulsion [Unknown]
  - Device dislocation [Unknown]

NARRATIVE: CASE EVENT DATE: 20151119
